FAERS Safety Report 17134942 (Version 7)
Quarter: 2020Q1

REPORT INFORMATION
  Report Type: Spontaneous
  Country: US (occurrence: US)
  Receive Date: 20191210
  Receipt Date: 20200316
  Transmission Date: 20200409
  Serious: Yes (Hospitalization, Other)
  Sender: FDA-Public Use
  Company Number: US-PFIZER INC-2019396247

PATIENT
  Age: 75 Year
  Sex: Male
  Weight: 73 kg

DRUGS (60)
  1. BUMETANIDE. [Suspect]
     Active Substance: BUMETANIDE
     Indication: CARDIAC FAILURE CONGESTIVE
  2. METOLAZONE. [Suspect]
     Active Substance: METOLAZONE
     Indication: FLUID RETENTION
     Dosage: 2.5 MG, CYCLIC 2.5 MG ON FRIDAY AND SATURDAY
     Route: 048
     Dates: start: 201911, end: 2019
  3. METOLAZONE. [Suspect]
     Active Substance: METOLAZONE
     Indication: FLUID RETENTION
     Dosage: 2.5 MG, UNK [EVERY TUES + FRI]
     Route: 048
     Dates: start: 20170913
  4. MAGNESIUM [Concomitant]
     Active Substance: MAGNESIUM
     Dosage: 400 MG, 1X/DAY(1 TAB(S) ORAL AT BEDTIME)
     Route: 048
  5. POLYETHYLENE GLYCOL 3350. [Concomitant]
     Active Substance: POLYETHYLENE GLYCOL 3350
     Dosage: UNK UNK, AS NEEDED (TAKE 1 PACKET BY ORAL ROUTE EVERY DAY AS NEEDED)
     Route: 048
  6. POLYETHYLENE GLYCOL 3350. [Concomitant]
     Active Substance: POLYETHYLENE GLYCOL 3350
     Dosage: UNK
     Dates: start: 2018
  7. MIRALAX [Concomitant]
     Active Substance: POLYETHYLENE GLYCOL 3350
     Dosage: UNK
     Dates: start: 2018
  8. VYNDAQEL [Suspect]
     Active Substance: TAFAMIDIS MEGLUMINE
     Indication: AMYLOIDOSIS
     Dosage: 80 MG, 4X/DAY
     Route: 048
     Dates: start: 201907, end: 2019
  9. VYNDAQEL [Suspect]
     Active Substance: TAFAMIDIS MEGLUMINE
     Indication: OEDEMA
     Dosage: 80 MG, DAILY
     Route: 048
     Dates: start: 2019, end: 2019
  10. VYNDAQEL [Suspect]
     Active Substance: TAFAMIDIS MEGLUMINE
     Indication: WERNICKE^S ENCEPHALOPATHY
  11. WARFARIN [Concomitant]
     Active Substance: WARFARIN
     Indication: CORONARY ARTERY ANEURYSM
     Dosage: 5 MG, UNK (MONDAY, TUESDAY, WEDNESDAY, THURSDAY, FRIDAY)
     Route: 048
     Dates: start: 20191126
  12. WARFARIN [Concomitant]
     Active Substance: WARFARIN
     Dosage: 2.5 MG, UNK (SATURDAY, SUNDAY)
     Route: 048
     Dates: start: 20191126
  13. WARFARIN [Concomitant]
     Active Substance: WARFARIN
     Dosage: 0.5 MG, UNK
     Route: 048
     Dates: start: 20191126
  14. WARFARIN [Concomitant]
     Active Substance: WARFARIN
     Dosage: UNK [5 MG M-F 2.5 MG SAT/SUN]
     Dates: start: 20190911
  15. ESOMEPRAZOLE MAGNESIUM. [Concomitant]
     Active Substance: ESOMEPRAZOLE MAGNESIUM
     Dosage: 40 MG, DAILY (1 CAP ORAL AT BEDTIME)
     Route: 048
  16. LEVOTHYROXINE. [Concomitant]
     Active Substance: LEVOTHYROXINE
     Dosage: UNK
     Dates: start: 2010
  17. MAGNESIUM [Concomitant]
     Active Substance: MAGNESIUM
     Dosage: UNK
     Dates: start: 2019
  18. PLAVIX [Concomitant]
     Active Substance: CLOPIDOGREL BISULFATE
     Dosage: 75 MG, DAILY
     Route: 048
  19. POTASSIUM CHLORIDE. [Concomitant]
     Active Substance: POTASSIUM CHLORIDE
     Indication: HYPOKALAEMIA
     Dosage: 20 MEQ, 2X/DAY
     Route: 048
  20. MAGNESIUM [Concomitant]
     Active Substance: MAGNESIUM
     Dosage: 400 MG, DAILY  (TAKE 2 TABS BY MOUTH DAILY)
     Route: 048
  21. ONDANSETRON HCL [Concomitant]
     Active Substance: ONDANSETRON HYDROCHLORIDE
     Dosage: 8 MG, AS NEEDED (TAKE 1 TABLET BY ORAL ROUTE EVERY 8 HOURS AS NEEDED)
     Route: 048
  22. DOCUSATE SODIUM;SENNA [Concomitant]
     Active Substance: DOCUSATE SODIUM\SENNOSIDES
     Dosage: 1 DF, 2X/DAY (DOCUSATE-SENNA 50 MG-8.6 MG ORAL TABLET)
     Route: 048
  23. CENTRUM SILVER +50 [Concomitant]
     Dosage: UNK
     Dates: start: 1999
  24. VYNDAQEL [Suspect]
     Active Substance: TAFAMIDIS MEGLUMINE
     Indication: ENCEPHALITIS
     Dosage: 80 MG, 1X/DAY (STRENGTH 20MG, 4 TAB EVERY MORNING)
     Route: 048
     Dates: start: 201907
  25. BUMETANIDE. [Suspect]
     Active Substance: BUMETANIDE
     Dosage: 4 MG, 2X/DAY (TWO 2 MG TABLET AM AND PM RESPETIVELY)
     Dates: start: 2010
  26. METOLAZONE. [Suspect]
     Active Substance: METOLAZONE
     Dosage: 5 MG, UNK (THUS AND FRIDAY 5MG)
     Dates: start: 2010
  27. ESOMEPRAZOLE MAGNESIUM. [Concomitant]
     Active Substance: ESOMEPRAZOLE MAGNESIUM
     Dosage: 40 MG, DAILY (TAKE 1 CAPSULE BY ORAL ROUTE EVERY DAY)
     Route: 048
  28. ESOMEPRAZOLE MAGNESIUM. [Concomitant]
     Active Substance: ESOMEPRAZOLE MAGNESIUM
     Dosage: UNK
     Dates: start: 2018
  29. FLONASE ALLERGY RELIEF [Concomitant]
     Active Substance: FLUTICASONE PROPIONATE
     Indication: NASAL CONGESTION
     Dosage: UNK, DAILY (INHALE 1 SPRAY BY INTRANASAL ROUTE 2 TIMES EVERY DAY IN EACH NOSTRIL AS NEEDED)
     Route: 045
  30. FLONASE ALLERGY RELIEF [Concomitant]
     Active Substance: FLUTICASONE PROPIONATE
     Dosage: UNK
     Dates: start: 2017
  31. GLYCOLAX [Concomitant]
     Active Substance: POLYETHYLENE GLYCOL 3350
     Dosage: 17 G, DAILY (EVERY DAY MIXED WITH 8 OZ.WATER, JUICE, SODA, COFFEE OR TEA AS NEEDED)
     Route: 048
  32. GLYCOLAX [Concomitant]
     Active Substance: POLYETHYLENE GLYCOL 3350
     Dosage: UNK
     Dates: start: 2018
  33. SERTRALINE [Concomitant]
     Active Substance: SERTRALINE HYDROCHLORIDE
     Dosage: 50 MG, DAILY (TAKE 1 TABLET BY ORAL ROUTE EVERY DAY)
     Route: 048
  34. DOCUSATE SODIUM;SENNA [Concomitant]
     Active Substance: DOCUSATE SODIUM\SENNOSIDES
     Dosage: UNK
     Dates: start: 2017
  35. ASPIRIN [ACETYLSALICYLIC ACID] [Concomitant]
     Active Substance: ASPIRIN
     Dosage: UNK
     Dates: start: 201909
  36. BUMETANIDE. [Suspect]
     Active Substance: BUMETANIDE
     Indication: OEDEMA PERIPHERAL
     Dosage: UNK (2 SUBSEQUENT IV DOSES)UNK
     Route: 042
  37. METOLAZONE. [Suspect]
     Active Substance: METOLAZONE
     Indication: CARDIAC FAILURE CONGESTIVE
     Dosage: 0.5 MG, AS NEEDED
     Route: 048
     Dates: start: 2019, end: 2019
  38. SERTRALINE [Concomitant]
     Active Substance: SERTRALINE HYDROCHLORIDE
     Dosage: UNK
     Dates: start: 2018
  39. ASPIRIN [ACETYLSALICYLIC ACID] [Concomitant]
     Active Substance: ASPIRIN
     Dosage: 81 MG, DAILY
     Route: 048
  40. POTASSIUM CHLORIDE. [Concomitant]
     Active Substance: POTASSIUM CHLORIDE
     Dosage: UNK
     Dates: start: 2010
  41. VYNDAQEL [Suspect]
     Active Substance: TAFAMIDIS MEGLUMINE
     Indication: MENINGITIS BACTERIAL
  42. WARFARIN [Concomitant]
     Active Substance: WARFARIN
     Dosage: UNK
     Dates: start: 201908
  43. ONDANSETRON HCL [Concomitant]
     Active Substance: ONDANSETRON HYDROCHLORIDE
     Dosage: UNK
     Dates: start: 2017
  44. CENTRUM SILVER +50 [Concomitant]
     Dosage: 1 DF, DAILY (1 TAB(S) ORAL EVERY DAY)
     Route: 048
  45. BUMEX [Concomitant]
     Active Substance: BUMETANIDE
     Dosage: 4 MG, 1X/DAY
  46. PLAVIX [Concomitant]
     Active Substance: CLOPIDOGREL BISULFATE
     Dosage: UNK
     Dates: start: 201909
  47. FERROUS SULFATE. [Concomitant]
     Active Substance: FERROUS SULFATE
     Dosage: UNK
     Dates: start: 2017
  48. VYNDAQEL [Suspect]
     Active Substance: TAFAMIDIS MEGLUMINE
     Indication: CARDIAC FAILURE CONGESTIVE
     Dosage: 80 MG, 1X/DAY (EVERY MORNING.)
     Route: 048
     Dates: start: 2019, end: 2019
  49. VYNDAQEL [Suspect]
     Active Substance: TAFAMIDIS MEGLUMINE
     Indication: MENINGITIS VIRAL
     Dosage: 65 MG, 1X/DAY
     Dates: start: 201907
  50. BUMETANIDE. [Suspect]
     Active Substance: BUMETANIDE
     Indication: OEDEMA PERIPHERAL
     Dosage: 2.5 MG, 2X/DAY
     Route: 048
  51. LEVOTHYROXINE. [Concomitant]
     Active Substance: LEVOTHYROXINE
     Dosage: 112 UG, DAILY (TAKE 1 TABLET BY ORAL ROUTE EVERY DAY)
     Route: 048
  52. MIRALAX [Concomitant]
     Active Substance: POLYETHYLENE GLYCOL 3350
     Dosage: 8.5 G, DAILY
     Route: 048
  53. EPLERENONE. [Concomitant]
     Active Substance: EPLERENONE
     Dosage: 25 MG, 2X/DAY
     Route: 048
  54. POTASSIUM CHLORIDE. [Concomitant]
     Active Substance: POTASSIUM CHLORIDE
     Dosage: 20 MEQ, 2X/DAY
     Route: 048
     Dates: start: 20180511
  55. BUMETANIDE. [Suspect]
     Active Substance: BUMETANIDE
     Indication: CARDIAC FAILURE CONGESTIVE
     Dosage: 2 MG, 2X/DAY
     Route: 048
     Dates: start: 20171103
  56. METOLAZONE. [Suspect]
     Active Substance: METOLAZONE
     Indication: OEDEMA PERIPHERAL
     Dosage: 5 MG, AS NEEDED
     Route: 048
  57. ONDANSETRON HCL [Concomitant]
     Active Substance: ONDANSETRON HYDROCHLORIDE
     Dosage: 8 MG, DAILY
     Route: 048
     Dates: start: 20191126
  58. ONDANSETRON HCL [Concomitant]
     Active Substance: ONDANSETRON HYDROCHLORIDE
     Dosage: 8 MG, 3X/DAY
     Route: 048
     Dates: start: 20191126
  59. EPLERENONE. [Concomitant]
     Active Substance: EPLERENONE
     Dosage: UNK
     Dates: start: 2018
  60. FERROUS SULFATE. [Concomitant]
     Active Substance: FERROUS SULFATE
     Dosage: 325 MG, 1X/DAY ((65 MG ELEMENTAL IRON) ORAL TABLET) 1 TAB(S) ORAL AT BEDTIME)
     Route: 048

REACTIONS (38)
  - Fatigue [Not Recovered/Not Resolved]
  - Chronic kidney disease [Unknown]
  - Dehydration [Unknown]
  - Gait disturbance [Unknown]
  - Asthenia [Unknown]
  - Dizziness [Unknown]
  - Weight decreased [Unknown]
  - Lactic acidosis [Unknown]
  - Hypothyroidism [Unknown]
  - Coronary artery disease [Unknown]
  - Pyrexia [Unknown]
  - Disturbance in attention [Unknown]
  - Mental status changes [Recovered/Resolved]
  - Hypokalaemia [Unknown]
  - Gastrointestinal haemorrhage [Unknown]
  - Haemoglobin decreased [Unknown]
  - Haemorrhage [Unknown]
  - Anaemia [Unknown]
  - Iron deficiency anaemia [Unknown]
  - Depression [Unknown]
  - Hypotension [Unknown]
  - Gastrooesophageal reflux disease [Unknown]
  - Product prescribing error [Unknown]
  - Disorientation [Unknown]
  - Atrial fibrillation [Unknown]
  - Drug ineffective [Unknown]
  - Troponin increased [Unknown]
  - Hypernatraemia [Unknown]
  - Hypermagnesaemia [Unknown]
  - Lethargy [Unknown]
  - Metabolic encephalopathy [Unknown]
  - Hyperlipidaemia [Unknown]
  - Toxic encephalopathy [Unknown]
  - Encephalitis viral [Unknown]
  - Thrombosis [Unknown]
  - Speech disorder [Unknown]
  - Orthostatic hypotension [Unknown]
  - Rash macular [Unknown]

NARRATIVE: CASE EVENT DATE: 2019
